FAERS Safety Report 12802340 (Version 1)
Quarter: 2016Q4

REPORT INFORMATION
  Report Type: Spontaneous
  Country: US (occurrence: US)
  Receive Date: 20161003
  Receipt Date: 20161003
  Transmission Date: 20170207
  Serious: Yes (Disabling)
  Sender: FDA-Public Use
  Company Number: None

PATIENT
  Age: 73 Year
  Sex: Female
  Weight: 71.28 kg

DRUGS (10)
  1. LISINOPRIL. [Concomitant]
     Active Substance: LISINOPRIL
  2. ACETAMINOPHEN. [Concomitant]
     Active Substance: ACETAMINOPHEN
  3. ROSUVASTATIN. [Concomitant]
     Active Substance: ROSUVASTATIN
  4. XARELTO [Concomitant]
     Active Substance: RIVAROXABAN
  5. MELATONIN [Concomitant]
     Active Substance: MELATONIN
  6. DILTIAZEM HCL [Suspect]
     Active Substance: DILTIAZEM HYDROCHLORIDE
     Indication: HYPERTENSION
     Dosage: 180MG CAP (30) ONE CAPSULE ONCE DAILY BY MOUTH
     Route: 048
     Dates: start: 20150901
  7. DILTIAZEM HCL [Suspect]
     Active Substance: DILTIAZEM HYDROCHLORIDE
     Indication: ATRIAL FIBRILLATION
     Dosage: 180MG CAP (30) ONE CAPSULE ONCE DAILY BY MOUTH
     Route: 048
     Dates: start: 20150901
  8. OCUVITE [Concomitant]
     Active Substance: VITAMINS
  9. CALCIUM [Concomitant]
     Active Substance: CALCIUM
  10. DOCUSATE SODIUM. [Concomitant]
     Active Substance: DOCUSATE SODIUM

REACTIONS (7)
  - Lip swelling [None]
  - Abdominal discomfort [None]
  - Swollen tongue [None]
  - Tongue dry [None]
  - Nausea [None]
  - Dizziness [None]
  - Eye irritation [None]

NARRATIVE: CASE EVENT DATE: 20160913
